FAERS Safety Report 19957496 (Version 2)
Quarter: 2021Q4

REPORT INFORMATION
  Report Type: Report from Study
  Country: US (occurrence: US)
  Receive Date: 20211014
  Receipt Date: 20211202
  Transmission Date: 20220303
  Serious: Yes (Hospitalization, Other)
  Sender: FDA-Public Use
  Company Number: US-ABBVIE-21K-163-4078407-00

PATIENT
  Age: 67 Year
  Sex: Female

DRUGS (3)
  1. HUMIRA [Suspect]
     Active Substance: ADALIMUMAB
     Indication: Rheumatoid arthritis
     Dosage: CITRATE FREE
     Route: 058
  2. MODERNA COVID-19 VACCINE [Concomitant]
     Active Substance: ELASOMERAN
     Indication: COVID-19 immunisation
     Route: 030
     Dates: start: 20210217, end: 20210217
  3. MODERNA COVID-19 VACCINE [Concomitant]
     Active Substance: ELASOMERAN
     Route: 030
     Dates: start: 20210317, end: 20210317

REACTIONS (8)
  - Hernia [Recovering/Resolving]
  - Cholelithiasis [Recovering/Resolving]
  - Spinal deformity [Unknown]
  - Somnolence [Unknown]
  - Fall [Unknown]
  - Fractured coccyx [Unknown]
  - Back pain [Not Recovered/Not Resolved]
  - Intervertebral discitis [Unknown]

NARRATIVE: CASE EVENT DATE: 20210201
